FAERS Safety Report 5091039-4 (Version None)
Quarter: 2006Q3

REPORT INFORMATION
  Report Type: 
  Country: None (occurrence: None)
  Receive Date: 20060829
  Receipt Date: 20060607
  Transmission Date: 20061208
  Serious: No
  Sender: FDA-Public Use
  Company Number: US-GLAXOSMITHKLINE-A0608252A

PATIENT
  Age: 77 Year
  Sex: Female

DRUGS (4)
  1. ZOVIRAX [Suspect]
     Dosage: 400MG THREE TIMES PER DAY
     Route: 048
     Dates: start: 20060515, end: 20060524
  2. DIGOXIN [Concomitant]
  3. LOPRESSOR [Concomitant]
  4. COUMADIN [Concomitant]

REACTIONS (1)
  - DRUG INEFFECTIVE [None]
